FAERS Safety Report 6207149-1 (Version None)
Quarter: 2009Q2

REPORT INFORMATION
  Report Type: 
  Country: None (occurrence: None)
  Receive Date: 20090528
  Receipt Date: 20090518
  Transmission Date: 20091009
  Serious: Yes (Hospitalization)
  Sender: FDA-Public Use
  Company Number: NL-WATSON-2009-03591

PATIENT
  Sex: Female

DRUGS (2)
  1. AFEDITAB (WATSON LABORATORIES) [Suspect]
     Indication: HYPERTENSION
     Dosage: UNK
     Route: 065
  2. RITODRINE HYDROCHLORIDE [Suspect]
     Indication: TOCOLYSIS
     Dosage: UNK

REACTIONS (1)
  - HYPOXIA [None]
